FAERS Safety Report 17535519 (Version 2)
Quarter: 2020Q1

REPORT INFORMATION
  Report Type: Spontaneous
  Country: JP (occurrence: JP)
  Receive Date: 20200312
  Receipt Date: 20200330
  Transmission Date: 20200409
  Serious: Yes (Other)
  Sender: FDA-Public Use
  Company Number: JP-TAKEDA-2019TJP027785AA

PATIENT
  Age: 82 Year
  Sex: Female
  Weight: 38.5 kg

DRUGS (19)
  1. NEUPRO [Suspect]
     Active Substance: ROTIGOTINE
     Indication: PRODUCT USED FOR UNKNOWN INDICATION
     Dosage: 4.5 MILLIGRAM, QD
     Route: 065
     Dates: start: 20190703
  2. ROZEREM [Suspect]
     Active Substance: RAMELTEON
     Indication: PRODUCT USED FOR UNKNOWN INDICATION
     Dosage: 8 MILLIGRAM, QD
     Route: 065
     Dates: start: 20190808
  3. YOKUKANSAN [Suspect]
     Active Substance: HERBALS
     Dosage: 2.5 GRAM, TID
     Route: 065
     Dates: start: 20190702
  4. ARICEPT [Suspect]
     Active Substance: DONEPEZIL HYDROCHLORIDE
     Indication: HALLUCINATION, VISUAL
     Dosage: 3 MILLIGRAM, QD
     Route: 065
     Dates: start: 20190715
  5. NEXIUM [Suspect]
     Active Substance: ESOMEPRAZOLE MAGNESIUM
     Indication: PRODUCT USED FOR UNKNOWN INDICATION
     Dosage: 20 MILLIGRAM, QD
     Route: 065
     Dates: start: 20190808
  6. MAGMITT [Suspect]
     Active Substance: MAGNESIUM OXIDE
     Indication: PRODUCT USED FOR UNKNOWN INDICATION
     Dosage: 250 MILLIGRAM, TID
     Route: 065
     Dates: start: 20190808
  7. NOURIAST [Suspect]
     Active Substance: ISTRADEFYLLINE
     Indication: PRODUCT USED FOR UNKNOWN INDICATION
     Dosage: 20 MILLIGRAM, QD
     Route: 065
     Dates: start: 20190808
  8. QUETIAPINE                         /01270902/ [Suspect]
     Active Substance: QUETIAPINE FUMARATE
     Dosage: 25 MILLIGRAM
     Route: 065
  9. TRERIEF [Suspect]
     Active Substance: ZONISAMIDE
     Indication: PRODUCT USED FOR UNKNOWN INDICATION
     Dosage: 25 MILLIGRAM, QD
     Route: 065
     Dates: start: 20190808
  10. BELSOMRA [Suspect]
     Active Substance: SUVOREXANT
     Indication: PRODUCT USED FOR UNKNOWN INDICATION
     Dosage: 15 MILLIGRAM, QD
     Route: 065
     Dates: start: 20190808
  11. YOKUKANSAN [Suspect]
     Active Substance: HERBALS
     Indication: HALLUCINATION, VISUAL
     Dosage: UNK
     Route: 065
  12. CARCOPA [Suspect]
     Active Substance: CARBIDOPA\LEVODOPA
     Indication: PRODUCT USED FOR UNKNOWN INDICATION
     Dosage: 4 DOSAGE FORM
     Route: 065
     Dates: start: 20190808
  13. MOSAPRIDE CITRATE [Suspect]
     Active Substance: MOSAPRIDE CITRATE
     Indication: PRODUCT USED FOR UNKNOWN INDICATION
     Dosage: 5 MILLIGRAM, TID
     Route: 065
     Dates: start: 20190808
  14. AZILECT [Suspect]
     Active Substance: RASAGILINE MESYLATE
     Indication: PARKINSON^S DISEASE
     Dosage: 1 MILLIGRAM, QD
     Route: 048
     Dates: start: 20190809, end: 20191022
  15. BI SIFROL [Suspect]
     Active Substance: PRAMIPEXOLE
     Indication: PRODUCT USED FOR UNKNOWN INDICATION
     Dosage: 0.5 MILLIGRAM, QD
     Route: 065
     Dates: start: 20190808
  16. QUETIAPINE                         /01270902/ [Suspect]
     Active Substance: QUETIAPINE FUMARATE
     Dosage: 25 MILLIGRAM, QD
     Route: 065
     Dates: start: 20190808
  17. DOMPERIDONE [Suspect]
     Active Substance: DOMPERIDONE
     Indication: PRODUCT USED FOR UNKNOWN INDICATION
     Dosage: 10 MILLIGRAM, TID
     Route: 065
     Dates: start: 20190808
  18. AZILECT [Suspect]
     Active Substance: RASAGILINE MESYLATE
     Indication: THERAPEUTIC RESPONSE SHORTENED
  19. QUETIAPINE                         /01270902/ [Suspect]
     Active Substance: QUETIAPINE FUMARATE
     Indication: PRODUCT USED FOR UNKNOWN INDICATION
     Dosage: 12.5 MILLIGRAM
     Route: 065

REACTIONS (2)
  - Orthostatic hypotension [Recovered/Resolved]
  - Blood pressure fluctuation [Recovered/Resolved]

NARRATIVE: CASE EVENT DATE: 20191014
